FAERS Safety Report 23789050 (Version 1)
Quarter: 2024Q2

REPORT INFORMATION
  Report Type: Spontaneous
  Country: US (occurrence: None)
  Receive Date: 20240425
  Receipt Date: 20240425
  Transmission Date: 20240715
  Serious: Yes (Other)
  Sender: FDA-Public Use
  Company Number: None

PATIENT
  Age: 60 Year
  Sex: Female
  Weight: 58.5 kg

DRUGS (1)
  1. COSENTYX [Suspect]
     Active Substance: SECUKINUMAB
     Indication: Hidradenitis
     Dosage: 150 MG/ML MONTHLY SUBCUTANEOUS
     Route: 058
     Dates: start: 20240124, end: 20240425

REACTIONS (3)
  - Fungal infection [None]
  - Dysphagia [None]
  - Oesophageal disorder [None]

NARRATIVE: CASE EVENT DATE: 20240404
